FAERS Safety Report 7249623-5 (Version None)
Quarter: 2011Q1

REPORT INFORMATION
  Report Type: 
  Country: None (occurrence: None)
  Receive Date: 20110128
  Receipt Date: 20101215
  Transmission Date: 20110831
  Serious: Yes (Hospitalization, Other)
  Sender: FDA-Public Use
  Company Number: US-BAYER-201023063NA

PATIENT
  Sex: Female
  Weight: 58.957 kg

DRUGS (15)
  1. YASMIN [Suspect]
     Indication: PRODUCT USED FOR UNKNOWN INDICATION
     Dosage: UNK UNK, UNK
     Route: 048
  2. YAZ [Suspect]
     Indication: ORAL CONTRACEPTION
     Dosage: UNK UNK, QD
     Route: 048
     Dates: start: 20061101, end: 20080201
  3. ZOMIG [Concomitant]
  4. BENADRYL [Concomitant]
  5. ASCORBIC ACID [Concomitant]
  6. ALBUTEROL [Concomitant]
  7. IBUPROFEN [Concomitant]
  8. FIORICET [Concomitant]
  9. UNCODEABLE ^UNCLASSIFIABLE^ [Concomitant]
  10. PERCOCET [Concomitant]
     Indication: PAIN
     Dosage: UNK
     Dates: start: 20070227
  11. FOLIC ACID [Concomitant]
  12. TAGAMET [Concomitant]
  13. MEDROL [Concomitant]
  14. CLARITIN [Concomitant]
  15. BETAMETHASONE [Concomitant]

REACTIONS (7)
  - NAUSEA [None]
  - CHOLELITHIASIS [None]
  - ABDOMINAL PAIN UPPER [None]
  - VOMITING [None]
  - ABDOMINAL PAIN [None]
  - GALLBLADDER DISORDER [None]
  - BACK PAIN [None]
